FAERS Safety Report 5794929-X (Version None)
Quarter: 2008Q2

REPORT INFORMATION
  Report Type: 
  Country: None (occurrence: None)
  Receive Date: 20080630
  Receipt Date: 20080623
  Transmission Date: 20081010
  Serious: Yes (Hospitalization, Other)
  Sender: FDA-Public Use
  Company Number: US-PURDUE-USA_2008_0033644

PATIENT
  Sex: Female

DRUGS (1)
  1. OXYCONTIN [Suspect]
     Indication: COMPLEX REGIONAL PAIN SYNDROME
     Dosage: UNK MG, UNK
     Route: 048
     Dates: start: 20000201

REACTIONS (7)
  - ANHEDONIA [None]
  - DRUG DEPENDENCE [None]
  - FAMILY STRESS [None]
  - GENERAL PHYSICAL HEALTH DETERIORATION [None]
  - HOSPITALISATION [None]
  - PAIN [None]
  - PERSONALITY CHANGE [None]
